FAERS Safety Report 5435981-0 (Version None)
Quarter: 2007Q3

REPORT INFORMATION
  Report Type: 
  Country: None (occurrence: None)
  Receive Date: 20070831
  Receipt Date: 20070829
  Transmission Date: 20080115
  Serious: Yes (Death)
  Sender: FDA-Public Use
  Company Number: A0628510A

PATIENT
  Age: 78 Year
  Sex: Male
  Weight: 98 kg

DRUGS (4)
  1. SERETIDE [Suspect]
     Indication: ASTHMA
     Route: 055
     Dates: start: 20040101, end: 20061028
  2. BUDESONIDE [Concomitant]
     Dosage: 2TAB PER DAY
     Route: 048
  3. SPIRIVA [Concomitant]
     Dosage: 1TAB PER DAY
     Route: 048
  4. COMBIVENT [Concomitant]
     Route: 065

REACTIONS (1)
  - LUNG NEOPLASM [None]
